FAERS Safety Report 5869979-5 (Version None)
Quarter: 2008Q3

REPORT INFORMATION
  Report Type: 
  Country: None (occurrence: None)
  Receive Date: 20080904
  Receipt Date: 20080904
  Transmission Date: 20090109
  Serious: Yes (Hospitalization)
  Sender: FDA-Public Use
  Company Number: PHEH1995US01328

PATIENT
  Sex: Male
  Weight: 91.8 kg

DRUGS (6)
  1. NEORAL [Suspect]
     Route: 048
     Dates: start: 19951011
  2. IMURAN [Concomitant]
  3. PREDNISONE TAB [Concomitant]
  4. TRIMETHOPRIM [Concomitant]
  5. PROCARDIA [Concomitant]
  6. CATAPRES [Concomitant]

REACTIONS (3)
  - BLOOD UREA INCREASED [None]
  - URINARY TRACT INFECTION [None]
  - URINE OUTPUT DECREASED [None]
